FAERS Safety Report 12828006 (Version 1)
Quarter: 2016Q4

REPORT INFORMATION
  Report Type: Report from Study
  Country: NZ (occurrence: NZ)
  Receive Date: 20161007
  Receipt Date: 20161007
  Transmission Date: 20170207
  Serious: Yes (Hospitalization)
  Sender: FDA-Public Use
  Company Number: NZ-B.I. PHARMACEUTICALS,INC./RIDGEFIELD-2016-BI-54451BI

PATIENT
  Age: 81 Year
  Sex: Female
  Weight: 78 kg

DRUGS (9)
  1. EVENING PRIMROSE OIL [Concomitant]
     Active Substance: EVENING PRIMROSE OIL
     Indication: ROUTINE HEALTH MAINTENANCE
     Route: 048
     Dates: start: 201204
  2. COENZYME Q10 [Concomitant]
     Active Substance: UBIDECARENONE
     Indication: ROUTINE HEALTH MAINTENANCE
     Route: 048
     Dates: start: 20111117
  3. LECITHIN [Concomitant]
     Active Substance: LECITHIN
     Indication: ROUTINE HEALTH MAINTENANCE
     Route: 048
     Dates: start: 20120620
  4. NITROLINGUAL [Concomitant]
     Active Substance: NITROGLYCERIN
     Indication: ANGINA PECTORIS
     Dosage: SPRAY; DAILY DOSE: PRN
     Route: 048
     Dates: start: 2009
  5. PAU D ARCO [Concomitant]
     Indication: ROUTINE HEALTH MAINTENANCE
     Route: 048
     Dates: start: 20120620
  6. MULTIVITAMINI [Concomitant]
     Indication: ROUTINE HEALTH MAINTENANCE
     Route: 048
     Dates: start: 20120620
  7. BLINDED BI 1356 [Suspect]
     Active Substance: LINAGLIPTIN
     Indication: TYPE 2 DIABETES MELLITUS
     Route: 048
     Dates: start: 20110531, end: 20120109
  8. ASPIRIN. [Concomitant]
     Active Substance: ASPIRIN
     Indication: CARDIOVASCULAR EVENT PROPHYLAXIS
     Route: 048
     Dates: start: 20120907
  9. CANDESTARTIN [Concomitant]
     Indication: HYPERTENSION
     Route: 048
     Dates: start: 20120907

REACTIONS (1)
  - Ovarian fibroma [Recovered/Resolved]

NARRATIVE: CASE EVENT DATE: 20160624
